FAERS Safety Report 20614470 (Version 1)
Quarter: 2022Q1

REPORT INFORMATION
  Report Type: Spontaneous
  Country: CA (occurrence: CA)
  Receive Date: 20220321
  Receipt Date: 20220321
  Transmission Date: 20220423
  Serious: Yes (Other)
  Sender: FDA-Public Use
  Company Number: CA-MLMSERVICE-20211027-3187020-1

PATIENT
  Age: 59 Year
  Sex: Female

DRUGS (9)
  1. CIPROFLOXACIN [Suspect]
     Active Substance: CIPROFLOXACIN
     Indication: Antibiotic therapy
     Dosage: 500 MILLIGRAM, TWO TIMES A DAY
     Route: 048
  2. CEFTAZIDIME [Concomitant]
     Active Substance: CEFTAZIDIME
     Indication: Antibiotic therapy
     Dosage: 2.25 MG/0.1 ML
     Route: 065
  3. DEXAMETHASONE [Concomitant]
     Active Substance: DEXAMETHASONE
     Indication: Antibiotic therapy
     Dosage: 400 MG/0.1 ML
     Route: 065
  4. MOXIFLOXACIN [Concomitant]
     Active Substance: MOXIFLOXACIN
     Indication: Antibiotic therapy
     Dosage: 500 MG/0.1 ML
     Route: 065
  5. METFORMIN [Concomitant]
     Active Substance: METFORMIN HYDROCHLORIDE
     Indication: Type 2 diabetes mellitus
     Dosage: UNK
     Route: 048
  6. PREDNISONE [Concomitant]
     Active Substance: PREDNISONE
     Indication: Product used for unknown indication
     Dosage: 30 MILLIGRAM, ONCE A DAY
     Route: 048
  7. PRED FORTE [Concomitant]
     Active Substance: PREDNISOLONE ACETATE
     Indication: Uveitis
     Dosage: UNK
     Route: 047
  8. PRED FORTE [Concomitant]
     Active Substance: PREDNISOLONE ACETATE
     Indication: Hypopyon
  9. VANCOMYCIN [Concomitant]
     Active Substance: VANCOMYCIN
     Indication: Antibiotic therapy
     Dosage: 1 MG/0.1 ML
     Route: 065

REACTIONS (5)
  - Nausea [Unknown]
  - Vomiting [Unknown]
  - Erythema [Unknown]
  - Eye pain [Unknown]
  - Periorbital oedema [Unknown]
